FAERS Safety Report 10066993 (Version 1)
Quarter: 2014Q2

REPORT INFORMATION
  Report Type: Spontaneous
  Country: JP (occurrence: JP)
  Receive Date: 20140409
  Receipt Date: 20140409
  Transmission Date: 20141212
  Serious: Yes (Death)
  Sender: FDA-Public Use
  Company Number: JP-AMGEN-JPNSP2014024119

PATIENT
  Age: 9 Decade
  Sex: 0

DRUGS (1)
  1. PRALIA [Suspect]
     Indication: OSTEOPOROSIS
     Dosage: 60 MG/TIMES
     Route: 058
     Dates: start: 201403

REACTIONS (1)
  - Death [Fatal]
